FAERS Safety Report 24683776 (Version 1)
Quarter: 2024Q4

REPORT INFORMATION
  Report Type: Spontaneous
  Country: US (occurrence: US)
  Receive Date: 20241202
  Receipt Date: 20241202
  Transmission Date: 20250115
  Serious: Yes (Other)
  Sender: AMGEN
  Company Number: US-AMGEN-USASP2024233992

PATIENT
  Age: 41 Year
  Sex: Female

DRUGS (10)
  1. PREDNISONE [Suspect]
     Active Substance: PREDNISONE
     Indication: Aniridia
     Dosage: UNK
     Route: 048
  2. DIFLUPREDNATE [Concomitant]
     Active Substance: DIFLUPREDNATE
     Indication: Aniridia
     Dosage: UNK, SIX TIMES DAILY
  3. DIFLUPREDNATE [Concomitant]
     Active Substance: DIFLUPREDNATE
     Dosage: UNK, DOSE INCREASED TO EVERY TWO HOURS
  4. DIFLUPREDNATE [Concomitant]
     Active Substance: DIFLUPREDNATE
     Dosage: UNK, TAPER OFF
  5. DIFLUPREDNATE [Concomitant]
     Active Substance: DIFLUPREDNATE
     Dosage: UNK, Q2H
  6. CYCLOSPORINE [Concomitant]
     Active Substance: CYCLOSPORINE
     Indication: Aniridia
     Dosage: UNK, BID
  7. Brimonidine/timolol mylan [Concomitant]
     Indication: Aniridia
     Dosage: UNK, BID
  8. MYCOPHENOLIC ACID [Concomitant]
     Active Substance: MYCOPHENOLIC ACID
     Indication: Aniridia
     Dosage: UNK
  9. TACROLIMUS [Concomitant]
     Active Substance: TACROLIMUS
     Indication: Aniridia
     Dosage: UNK
  10. VALGANCICLOVIR [Concomitant]
     Active Substance: VALGANCICLOVIR
     Indication: Aniridia
     Dosage: UNK

REACTIONS (4)
  - Retinal detachment [Unknown]
  - Proliferative vitreoretinopathy [Unknown]
  - Corneal toxicity [Recovered/Resolved]
  - Off label use [Unknown]
